FAERS Safety Report 4960842-0 (Version None)
Quarter: 2006Q2

REPORT INFORMATION
  Report Type: 
  Country: None (occurrence: None)
  Receive Date: 20060403
  Receipt Date: 20060308
  Transmission Date: 20061013
  Serious: Yes (Hospitalization)
  Sender: FDA-Public Use
  Company Number: JP-ROCHE-439938

PATIENT
  Age: 7 Year
  Sex: Female
  Weight: 21 kg

DRUGS (5)
  1. TAMIFLU [Suspect]
     Route: 048
     Dates: start: 20060215, end: 20060216
  2. COCARL [Concomitant]
     Route: 048
     Dates: start: 20060215, end: 20060216
  3. ASTOMIN [Concomitant]
     Route: 048
     Dates: start: 20060215, end: 20060216
  4. PERIACTIN [Concomitant]
     Route: 048
     Dates: start: 20060215, end: 20060216
  5. MUCODYNE [Concomitant]
     Route: 048
     Dates: start: 20060215, end: 20060216

REACTIONS (2)
  - HALLUCINATION [None]
  - VERTIGO [None]
